FAERS Safety Report 6241070-8 (Version None)
Quarter: 2009Q2

REPORT INFORMATION
  Report Type: 
  Country: None (occurrence: None)
  Receive Date: 20090619
  Receipt Date: 20090609
  Transmission Date: 20091009
  Serious: Yes (Other)
  Sender: FDA-Public Use
  Company Number: 2009-02275

PATIENT
  Age: 74 Year
  Sex: Female

DRUGS (3)
  1. VELCADE [Suspect]
     Indication: MULTIPLE MYELOMA
  2. THALIDOMIDE [Suspect]
     Indication: MULTIPLE MYELOMA
     Dosage: 200 MG, ORAL; 50 MG, ORAL
     Route: 048
     Dates: start: 20020301, end: 20041201
  3. THALIDOMIDE [Suspect]
     Indication: MULTIPLE MYELOMA
     Dosage: 200 MG, ORAL; 50 MG, ORAL
     Route: 048
     Dates: start: 20050401, end: 20060801

REACTIONS (1)
  - HYPOAESTHESIA [None]
